FAERS Safety Report 5357256-0 (Version None)
Quarter: 2007Q2

REPORT INFORMATION
  Report Type: 
  Country: None (occurrence: None)
  Receive Date: 20070614
  Receipt Date: 20070531
  Transmission Date: 20071010
  Serious: Yes (Disabling)
  Sender: FDA-Public Use
  Company Number: US-ELI_LILLY_AND_COMPANY-US200706000102

PATIENT
  Age: 52 Year
  Sex: Male
  Weight: 120.18 kg

DRUGS (7)
  1. SOMATROPIN [Suspect]
     Indication: HYPOPITUITARISM
     Dosage: 0.3 MG, UNK
     Dates: start: 20070208, end: 20070403
  2. LEVOTHYROXINE SODIUM [Concomitant]
     Indication: HYPOTHYROIDISM
     Dates: start: 20020301
  3. CORTEF [Concomitant]
     Indication: ADRENAL INSUFFICIENCY
     Dates: start: 20020401
  4. TESTOSTERONE [Concomitant]
     Indication: HYPOGONADISM
     Dates: start: 20020401
  5. FOSAMAX [Concomitant]
     Indication: OSTEOPOROSIS
     Dates: start: 20020401
  6. LIPITOR [Concomitant]
     Indication: HYPERLIPIDAEMIA
     Dates: start: 20020401
  7. FERROUS SULFATE [Concomitant]
     Indication: ANAEMIA
     Dates: start: 20020401

REACTIONS (1)
  - DIABETES MELLITUS [None]
